FAERS Safety Report 11631725 (Version 1)
Quarter: 2015Q4

REPORT INFORMATION
  Report Type: Spontaneous
  Country: US (occurrence: US)
  Receive Date: 20151015
  Receipt Date: 20151015
  Transmission Date: 20160304
  Serious: No
  Sender: FDA-Public Use
  Company Number: US-009507513-1510USA006813

PATIENT
  Age: 30 Year
  Sex: Female

DRUGS (1)
  1. BELSOMRA [Suspect]
     Active Substance: SUVOREXANT
     Indication: INSOMNIA
     Dosage: 10 MG ONE TABLET PER DAY, ONCE
     Route: 048

REACTIONS (2)
  - Feeling jittery [Recovered/Resolved]
  - Palpitations [Recovered/Resolved]
